FAERS Safety Report 9276679 (Version 1)
Quarter: 2013Q2

REPORT INFORMATION
  Report Type: Spontaneous
  Country: DE (occurrence: DE)
  Receive Date: 20130507
  Receipt Date: 20130507
  Transmission Date: 20140414
  Serious: Yes (Hospitalization)
  Sender: FDA-Public Use
  Company Number: PHHY2013DE043864

PATIENT
  Sex: Female

DRUGS (3)
  1. EXELON PATCH [Suspect]
     Dosage: 9.5 MG, DAILY
     Route: 062
     Dates: start: 2010, end: 2012
  2. EXELON PATCH [Suspect]
     Dosage: 2 PATCHES (4.6MG/24 HOURS), DAILY AT DIFFERENT SITES OF BODY
     Route: 062
     Dates: start: 2012
  3. VENLAFAXINE [Suspect]

REACTIONS (5)
  - Myocardial infarction [Unknown]
  - Inappropriate schedule of drug administration [Unknown]
  - Wrong technique in drug usage process [Unknown]
  - Restlessness [Unknown]
  - Application site erythema [Recovered/Resolved]
